FAERS Safety Report 8582080-5 (Version None)
Quarter: 2012Q3

REPORT INFORMATION
  Report Type: 
  Country: None (occurrence: None)
  Receive Date: 20120809
  Receipt Date: 20120807
  Transmission Date: 20120928
  Serious: Yes (Other)
  Sender: FDA-Public Use
  Company Number: AR-PFIZER INC-2012165251

PATIENT
  Age: 51 Year
  Sex: Female

DRUGS (9)
  1. LOSARTAN [Concomitant]
     Dosage: UNK
  2. LEVOTHYROXINE [Concomitant]
     Dosage: UNK
  3. HIDROCORTIZON [Concomitant]
     Dosage: UNK
  4. INSULIN [Concomitant]
     Dosage: UNK
  5. PREGABALIN [Concomitant]
     Dosage: UNK
  6. METFORMIN [Concomitant]
     Dosage: UNK
  7. OMEPRAZOLE [Concomitant]
     Dosage: UNK
  8. SOMAVERT [Suspect]
     Dosage: 15 MG, 3 TIMES A WEEK
     Route: 058
     Dates: start: 20120601
  9. SOMAVERT [Suspect]
     Indication: ACROMEGALY
     Dosage: 10 MG, EVERY DAY (7X WEEK)
     Route: 058
     Dates: start: 20111201

REACTIONS (1)
  - DIABETES MELLITUS [None]
